FAERS Safety Report 14546004 (Version 1)
Quarter: 2018Q1

REPORT INFORMATION
  Report Type: Spontaneous
  Country: SE (occurrence: SE)
  Receive Date: 20180219
  Receipt Date: 20180219
  Transmission Date: 20180509
  Serious: Yes (Disabling)
  Sender: FDA-Public Use
  Company Number: SE-009507513-1802SWE006997

PATIENT
  Age: 75 Year
  Sex: Male
  Weight: 89 kg

DRUGS (5)
  1. TROMBYL [Concomitant]
     Active Substance: ASPIRIN
     Dates: start: 20150401
  2. PANTOPRAZOLE [Concomitant]
     Active Substance: PANTOPRAZOLE
     Dates: start: 20121210
  3. FINASTERIDE. [Suspect]
     Active Substance: FINASTERIDE
     Indication: BENIGN PROSTATIC HYPERPLASIA
     Dosage: 5 MG, QD
     Dates: start: 20170518, end: 20171217
  4. METOPROLOL. [Concomitant]
     Active Substance: METOPROLOL
     Dates: start: 20150401
  5. ATORVASTATIN [Concomitant]
     Active Substance: ATORVASTATIN
     Dates: start: 20150401

REACTIONS (1)
  - Dysphonia [Recovered/Resolved with Sequelae]

NARRATIVE: CASE EVENT DATE: 20170910
